FAERS Safety Report 13448083 (Version 1)
Quarter: 2017Q2

REPORT INFORMATION
  Report Type: Spontaneous
  Country: US (occurrence: US)
  Receive Date: 20170417
  Receipt Date: 20170417
  Transmission Date: 20170830
  Serious: Yes (Other)
  Sender: FDA-Public Use
  Company Number: US-BAYER-2017-072851

PATIENT
  Sex: Female

DRUGS (1)
  1. MIRENA [Suspect]
     Active Substance: LEVONORGESTREL
     Dosage: 20 MCG/24HR, CONT
     Route: 015
     Dates: start: 2009

REACTIONS (12)
  - Medical device discomfort [None]
  - Genital haemorrhage [None]
  - Abdominal pain lower [None]
  - Fibromyalgia [None]
  - Insomnia [None]
  - Ectopic pregnancy with contraceptive device [None]
  - Device use issue [None]
  - Amenorrhoea [None]
  - Back pain [None]
  - Drug ineffective [None]
  - Device difficult to use [None]
  - Device issue [None]

NARRATIVE: CASE EVENT DATE: 2012
